FAERS Safety Report 9846400 (Version 2)
Quarter: 2014Q1

REPORT INFORMATION
  Report Type: Spontaneous
  Country: US (occurrence: None)
  Receive Date: 20140122
  Receipt Date: 20140224
  Transmission Date: 20141002
  Serious: Yes (Hospitalization, Other)
  Sender: FDA-Public Use
  Company Number: KAD201401-000044

PATIENT
  Age: 60 Year
  Sex: Male
  Weight: 68.4 kg

DRUGS (9)
  1. RIBAVIRIN [Suspect]
     Dates: start: 20111024
  2. SOFOSBUVIR [Suspect]
     Route: 048
     Dates: start: 20130905
  3. PROGRAF (TACROLIMUS) [Concomitant]
  4. PROTONIX (PANTOPRAZOLE SODIUM) [Concomitant]
  5. LOMOTIL (DIPHENOXYLATE, ATROPINE) [Concomitant]
  6. CELEXA (CITALOPRAM HYDROBROMIDE) [Concomitant]
  7. ZOFRAN (ONDANSETRON HYDROCHLORIDE) [Concomitant]
  8. SINEQUAN (DOXEPIN) [Concomitant]
  9. PROZAC (FLUOXETINE) [Concomitant]

REACTIONS (12)
  - Jaundice [None]
  - Condition aggravated [None]
  - Atelectasis [None]
  - Pneumobilia [None]
  - Infection [None]
  - Aspiration [None]
  - Drug dose omission [None]
  - Blood bilirubin increased [None]
  - Alanine aminotransferase increased [None]
  - Aspartate aminotransferase increased [None]
  - Blood alkaline phosphatase increased [None]
  - Acquired diaphragmatic eventration [None]
